FAERS Safety Report 19010438 (Version 1)
Quarter: 2021Q1

REPORT INFORMATION
  Report Type: Spontaneous
  Country: FR (occurrence: FR)
  Receive Date: 20210315
  Receipt Date: 20210315
  Transmission Date: 20210420
  Serious: Yes (Other)
  Sender: FDA-Public Use
  Company Number: NVSC2021FR059586

PATIENT
  Age: 43 Year
  Sex: Male

DRUGS (1)
  1. OLANZAPINE. [Suspect]
     Active Substance: OLANZAPINE
     Indication: HUNTINGTON^S DISEASE
     Dosage: 7.5 MG, QD
     Route: 065
     Dates: start: 201512, end: 201602

REACTIONS (2)
  - Dystonia [Unknown]
  - Product use in unapproved indication [Unknown]
